FAERS Safety Report 21041313 (Version 1)
Quarter: 2022Q3

REPORT INFORMATION
  Report Type: Spontaneous
  Country: DE (occurrence: DE)
  Receive Date: 20220705
  Receipt Date: 20220705
  Transmission Date: 20221027
  Serious: Yes (Other)
  Sender: FDA-Public Use
  Company Number: DE-ALKEM LABORATORIES LIMITED-DE-ALKEM-2022-06576

PATIENT
  Sex: Male
  Weight: 78 kg

DRUGS (3)
  1. DEFERASIROX [Suspect]
     Active Substance: DEFERASIROX
     Indication: Iron overload
     Dosage: UNK,  EVERY 1 DAY
     Route: 065
     Dates: start: 20220421
  2. DEFERASIROX [Suspect]
     Active Substance: DEFERASIROX
     Dosage: 720 MILLIGRAM, EVERY 1 DAY
     Route: 065
     Dates: start: 20220606
  3. RUXOLITINIB [Suspect]
     Active Substance: RUXOLITINIB
     Indication: Primary myelofibrosis
     Dosage: 2 DOSAGE FORM,  EVERY 1 DAY
     Route: 065

REACTIONS (3)
  - Iron overload [Unknown]
  - Coronavirus infection [Not Recovered/Not Resolved]
  - Serum ferritin increased [Recovering/Resolving]

NARRATIVE: CASE EVENT DATE: 20220510
